FAERS Safety Report 4701032-6 (Version None)
Quarter: 2005Q2

REPORT INFORMATION
  Report Type: 
  Country: None (occurrence: None)
  Receive Date: 20050627
  Receipt Date: 20050627
  Transmission Date: 20051028
  Serious: No
  Sender: FDA-Public Use
  Company Number: None

PATIENT
  Age: 60 Year
  Sex: Male

DRUGS (5)
  1. OXALIPLATIN [Suspect]
     Indication: NEOPLASM
  2. FLUOROURACIL [Suspect]
     Indication: NEOPLASM
  3. LEVOTHROID [Concomitant]
  4. DILANTIN [Concomitant]
  5. PHENOBARB [Concomitant]

REACTIONS (2)
  - LEUKOPENIA [None]
  - NEUTROPENIA [None]
